FAERS Safety Report 4681016-7 (Version None)
Quarter: 2005Q2

REPORT INFORMATION
  Report Type: 
  Country: None (occurrence: None)
  Receive Date: 20050601
  Receipt Date: 20050601
  Transmission Date: 20051028
  Serious: Yes (Hospitalization)
  Sender: FDA-Public Use
  Company Number: None

PATIENT
  Age: 59 Year
  Sex: Female
  Weight: 82.5547 kg

DRUGS (1)
  1. LESCOL XL [Suspect]
     Indication: BLOOD CHOLESTEROL INCREASED
     Dosage: 80MG  QD ORAL
     Route: 048
     Dates: start: 20050101, end: 20050511

REACTIONS (14)
  - ABASIA [None]
  - ARTHRALGIA [None]
  - CHROMATURIA [None]
  - DRUG INEFFECTIVE [None]
  - FATIGUE [None]
  - FIBROMYALGIA [None]
  - IMPAIRED HEALING [None]
  - MICTURITION URGENCY [None]
  - MUSCLE INJURY [None]
  - MYALGIA [None]
  - OEDEMA PERIPHERAL [None]
  - PAIN [None]
  - PAIN IN EXTREMITY [None]
  - URINARY RETENTION [None]
